FAERS Safety Report 8350762-6 (Version None)
Quarter: 2012Q2

REPORT INFORMATION
  Report Type: 
  Country: None (occurrence: None)
  Receive Date: 20120510
  Receipt Date: 20120503
  Transmission Date: 20120825
  Serious: Yes (Hospitalization, Congenital Anomaly)
  Sender: FDA-Public Use
  Company Number: US-GLAXOSMITHKLINE-A0976990A

PATIENT
  Sex: Female
  Weight: 3.5 kg

DRUGS (2)
  1. PAXIL [Suspect]
     Indication: HEADACHE
     Route: 064
     Dates: start: 19980201, end: 19980301
  2. VITAMIN AND MINERAL PRENATAL SUPPLEMENT W/ FOLIC ACID CAP [Concomitant]

REACTIONS (3)
  - CONGENITAL NOSE MALFORMATION [None]
  - CLEFT LIP AND PALATE [None]
  - FOETAL EXPOSURE DURING PREGNANCY [None]
